FAERS Safety Report 8085240-5 (Version None)
Quarter: 2012Q1

REPORT INFORMATION
  Report Type: 
  Country: None (occurrence: None)
  Receive Date: 20120128
  Receipt Date: 20110321
  Transmission Date: 20120608
  Serious: No
  Sender: FDA-Public Use
  Company Number: US-ABBOTT-11P-163-0713263-00

PATIENT
  Age: 50 Year
  Sex: Female

DRUGS (8)
  1. SINGULAIR [Concomitant]
     Indication: ADVERSE DRUG REACTION
  2. COMBIVENT [Concomitant]
     Indication: ASTHMA
  3. CLARINEX [Concomitant]
     Indication: SEASONAL ALLERGY
     Dosage: AS REQUIRED
  4. DULCOLAX [Concomitant]
     Indication: CONSTIPATION
  5. CLARINEX [Concomitant]
     Indication: ADVERSE DRUG REACTION
  6. NEXIUM [Concomitant]
     Indication: GASTROOESOPHAGEAL REFLUX DISEASE
  7. HUMIRA [Suspect]
     Indication: CROHN'S DISEASE
     Dates: start: 20091111
  8. SINGULAIR [Concomitant]
     Indication: SEASONAL ALLERGY

REACTIONS (2)
  - ABDOMINAL PAIN [None]
  - CROHN'S DISEASE [None]
